FAERS Safety Report 7141403-4 (Version None)
Quarter: 2010Q4

REPORT INFORMATION
  Report Type: 
  Country: None (occurrence: None)
  Receive Date: 20101207
  Receipt Date: 20101125
  Transmission Date: 20110411
  Serious: Yes (Other)
  Sender: FDA-Public Use
  Company Number: DE-JNJFOC-20101104066

PATIENT
  Sex: Female
  Weight: 85 kg

DRUGS (9)
  1. PALEXIA RETARD [Suspect]
     Indication: SCIATICA
     Route: 048
  2. PALEXIA RETARD [Suspect]
     Route: 048
  3. OXYCODON [Concomitant]
  4. OXYCODON [Concomitant]
  5. OXYCODON [Concomitant]
  6. CARBAMAZEPINE [Concomitant]
     Dosage: PERMANENT TREATMENT WITH 0.5-0-1 DOSAGE UNITS
  7. OMEPRAZOLE [Concomitant]
     Dosage: 1-0-0 DOSAGE UNITS
  8. TOLPERISONE [Concomitant]
     Dosage: 3X1 TO 3X2 DOSAGE UNITS
  9. MOVICOL [Concomitant]

REACTIONS (5)
  - DEPRESSION [None]
  - DIARRHOEA [None]
  - NAUSEA [None]
  - NIGHTMARE [None]
  - SUICIDAL IDEATION [None]
